FAERS Safety Report 5479550-5 (Version None)
Quarter: 2007Q4

REPORT INFORMATION
  Report Type: 
  Country: None (occurrence: None)
  Receive Date: 20071008
  Receipt Date: 20070823
  Transmission Date: 20080405
  Serious: Yes (Hospitalization, Other)
  Sender: FDA-Public Use
  Company Number: GB-AVENTIS-200716804GDDC

PATIENT
  Age: 69 Year
  Sex: Male

DRUGS (5)
  1. LEFLUNOMIDE [Suspect]
     Indication: RHEUMATOID ARTHRITIS
     Dates: start: 20050501, end: 20050701
  2. ETODOLAC [Concomitant]
     Dates: start: 20020101
  3. RANITIDINE HCL [Concomitant]
     Dates: start: 20020101
  4. PARACETAMOL [Concomitant]
     Dates: start: 20010101
  5. NIFEDIPINE [Concomitant]
     Dates: start: 20030101

REACTIONS (2)
  - ALVEOLITIS ALLERGIC [None]
  - DYSPNOEA [None]
